FAERS Safety Report 4672449-3 (Version None)
Quarter: 2005Q2

REPORT INFORMATION
  Report Type: 
  Country: None (occurrence: None)
  Receive Date: 20050524
  Receipt Date: 20050406
  Transmission Date: 20051028
  Serious: Yes (Hospitalization, Other)
  Sender: FDA-Public Use
  Company Number: PHHO2005CA05699

PATIENT
  Age: 78 Year
  Sex: Male

DRUGS (5)
  1. ARICEPT [Concomitant]
     Dosage: 10 MG, UNK
     Dates: start: 20041214
  2. CRESTOR [Concomitant]
     Dosage: 10 MG, QD
     Dates: start: 20041123
  3. SYNTHROID [Concomitant]
     Dosage: 50 MG, QD
     Dates: start: 20041123
  4. CELEXA [Concomitant]
     Dosage: 10 MG, QD
     Dates: start: 20050113
  5. DIOVAN HCT [Suspect]
     Indication: HYPERTENSION
     Dosage: 80/12.5MG, QD
     Route: 048
     Dates: start: 20041123, end: 20050206

REACTIONS (4)
  - FALL [None]
  - HEAD INJURY [None]
  - HYPOTENSION [None]
  - SUBDURAL HAEMATOMA [None]
